FAERS Safety Report 6214257-8 (Version None)
Quarter: 2009Q2

REPORT INFORMATION
  Report Type: 
  Country: None (occurrence: None)
  Receive Date: 20090604
  Receipt Date: 20090526
  Transmission Date: 20091009
  Serious: Yes (Hospitalization)
  Sender: FDA-Public Use
  Company Number: PHHY2009CA20531

PATIENT
  Sex: Female

DRUGS (1)
  1. SANDOSTATIN LAR [Suspect]
     Indication: CARCINOID SYNDROME
     Dosage: 30 MG, ONCE A MONTH
     Route: 030
     Dates: start: 20050729

REACTIONS (3)
  - CEREBRAL HAEMORRHAGE [None]
  - DYSPNOEA [None]
  - FALL [None]
